FAERS Safety Report 24306056 (Version 1)
Quarter: 2024Q3

REPORT INFORMATION
  Report Type: Spontaneous
  Country: IT (occurrence: IT)
  Receive Date: 20240911
  Receipt Date: 20240911
  Transmission Date: 20241017
  Serious: Yes (Hospitalization, Other)
  Sender: AUROBINDO
  Company Number: IT-BAXTER-2024BAX023710

PATIENT
  Age: 64 Year
  Sex: Female
  Weight: 41 kg

DRUGS (46)
  1. CARBOPLATIN [Suspect]
     Active Substance: CARBOPLATIN
     Indication: Diffuse large B-cell lymphoma stage IV
     Dosage: UNK (CYCLE 1 ARM 10)
     Route: 042
     Dates: start: 20240204, end: 20240204
  2. CARBOPLATIN [Suspect]
     Active Substance: CARBOPLATIN
     Dosage: 344.5 MG/M2 (CYCLE 2 ARM 10)
     Route: 042
     Dates: start: 20240306, end: 20240306
  3. DOXORUBICIN [Suspect]
     Active Substance: DOXORUBICIN
     Indication: Product used for unknown indication
     Dosage: UNK
     Route: 065
     Dates: start: 20231027, end: 20231029
  4. RITUXIMAB [Suspect]
     Active Substance: RITUXIMAB
     Indication: Diffuse large B-cell lymphoma stage IV
     Dosage: UNK
     Route: 065
     Dates: start: 20231027, end: 20231229
  5. RITUXIMAB [Suspect]
     Active Substance: RITUXIMAB
     Dosage: UNK (C1 ARM 10)
     Route: 042
     Dates: start: 20240203, end: 20240305
  6. RITUXIMAB [Suspect]
     Active Substance: RITUXIMAB
     Dosage: 375 MG/M2, (C2 ARM 10, DOSAGE FORM)
     Route: 042
     Dates: start: 20240305, end: 20240305
  7. PREDNISONE [Suspect]
     Active Substance: PREDNISONE
     Indication: Product used for unknown indication
     Dosage: UNK
     Route: 065
     Dates: start: 20231027, end: 20231229
  8. ETOPOSIDE [Suspect]
     Active Substance: ETOPOSIDE
     Indication: Diffuse large B-cell lymphoma stage IV
     Dosage: UNK (C1 ARM 10)
     Route: 042
     Dates: start: 20240203, end: 20240307
  9. ETOPOSIDE [Suspect]
     Active Substance: ETOPOSIDE
     Dosage: UNK (C2 ARM 10, 100 MG/M2 ON 07-MAR-2024)
     Route: 042
     Dates: start: 20240305, end: 20240307
  10. IFOSFAMIDE [Suspect]
     Active Substance: IFOSFAMIDE
     Indication: Diffuse large B-cell lymphoma stage IV
     Dosage: CYCLE 1 ARM 10
     Route: 042
     Dates: start: 20240204, end: 20240205
  11. IFOSFAMIDE [Suspect]
     Active Substance: IFOSFAMIDE
     Dosage: 500 MG/M2, CYCLE 2 ARM 10
     Route: 042
     Dates: start: 20240306, end: 20240306
  12. CYCLOPHOSPHAMIDE [Suspect]
     Active Substance: CYCLOPHOSPHAMIDE
     Indication: Product used for unknown indication
     Dosage: UNK
     Route: 065
     Dates: start: 20231027, end: 20231229
  13. EPCORITAMAB [Suspect]
     Active Substance: EPCORITAMAB
     Indication: Diffuse large B-cell lymphoma stage IV
     Dosage: UNK C1D1, PRIMING DOSE OF 0.16 MG
     Route: 058
     Dates: start: 20240205, end: 20240205
  14. EPCORITAMAB [Suspect]
     Active Substance: EPCORITAMAB
     Dosage: C1D8, THE INTERMEDIATE DOSE OF 0.8 MG
     Route: 058
     Dates: start: 20240213, end: 20240213
  15. EPCORITAMAB [Suspect]
     Active Substance: EPCORITAMAB
     Dosage: C1D15, FULL DOSE OF 48 MG
     Route: 058
     Dates: start: 20240220, end: 20240220
  16. EPCORITAMAB [Suspect]
     Active Substance: EPCORITAMAB
     Dosage: C2D1, 48 MG, DOSE ADMINISTERED PRIOR TO AE
     Route: 058
     Dates: start: 20240307, end: 20240307
  17. EPCORITAMAB [Suspect]
     Active Substance: EPCORITAMAB
     Dosage: C2D8-C4D15, 48 MG
     Route: 058
     Dates: start: 20240321, end: 20240510
  18. EPCORITAMAB [Suspect]
     Active Substance: EPCORITAMAB
     Dosage: C5D1 ONWARDS
     Route: 058
     Dates: start: 20240517
  19. VINCRISTINE [Suspect]
     Active Substance: VINCRISTINE
     Indication: Product used for unknown indication
     Dosage: UNK (THERAPY STOP DATE: 29-DEC-2024)
     Route: 065
     Dates: start: 20231027
  20. POTASSIUM CHLORIDE [Concomitant]
     Active Substance: POTASSIUM CHLORIDE
     Indication: Product used for unknown indication
     Dosage: UNK
     Route: 065
     Dates: start: 20240216, end: 20240225
  21. ENOXAPARIN SODIUM [Concomitant]
     Active Substance: ENOXAPARIN SODIUM
     Indication: Product used for unknown indication
     Dosage: UNK (START DATE: 29-APR-2024)
     Route: 065
     Dates: start: 20231018
  22. MYCOSTATIN [Concomitant]
     Active Substance: NYSTATIN
     Indication: Product used for unknown indication
     Dosage: UNK, ONGOING
     Route: 065
     Dates: start: 20240213
  23. PANTOPRAZOLE SODIUM [Concomitant]
     Active Substance: PANTOPRAZOLE SODIUM
     Indication: Product used for unknown indication
     Dosage: UNK
     Route: 065
     Dates: start: 20240228
  24. METHYLPREDNISOLONE [Concomitant]
     Active Substance: METHYLPREDNISOLONE
     Indication: Prophylaxis
     Dosage: 80 MILLIGRAM
     Route: 042
     Dates: start: 20240213, end: 20240213
  25. METHYLPREDNISOLONE [Concomitant]
     Active Substance: METHYLPREDNISOLONE
     Dosage: 80 MILLIGRAM
     Route: 042
     Dates: start: 20240220, end: 20240220
  26. METHYLPREDNISOLONE [Concomitant]
     Active Substance: METHYLPREDNISOLONE
     Dosage: 80 MILLIGRAM
     Route: 042
     Dates: start: 20240305, end: 20240305
  27. METHYLPREDNISOLONE [Concomitant]
     Active Substance: METHYLPREDNISOLONE
     Dosage: 80 MILLIGRAM
     Route: 042
     Dates: start: 20240307, end: 20240307
  28. LEVOFLOXACIN [Concomitant]
     Active Substance: LEVOFLOXACIN
     Indication: Product used for unknown indication
     Dosage: UNK
     Route: 065
     Dates: start: 20240211
  29. CEFTRIAXONE [Concomitant]
     Active Substance: CEFTRIAXONE\CEFTRIAXONE SODIUM
     Indication: Product used for unknown indication
     Dosage: UNK
     Route: 065
     Dates: start: 20240224, end: 20240324
  30. ALLOPURINOL [Concomitant]
     Active Substance: ALLOPURINOL
     Indication: Product used for unknown indication
     Dosage: UNK
     Route: 065
     Dates: start: 20231018
  31. FILGRASTIM [Concomitant]
     Active Substance: FILGRASTIM
     Indication: Product used for unknown indication
     Dosage: UNK
     Route: 065
     Dates: start: 20240211, end: 20240602
  32. ONDANSETRON [Concomitant]
     Active Substance: ONDANSETRON
     Indication: Product used for unknown indication
     Dosage: UNK
     Route: 065
     Dates: start: 20240203, end: 20240305
  33. ALLOPURINOL [Concomitant]
     Active Substance: ALLOPURINOL
     Indication: Product used for unknown indication
     Dosage: UNK
     Route: 065
     Dates: start: 20231018, end: 20240307
  34. PREDNISONE [Concomitant]
     Active Substance: PREDNISONE
     Indication: Prophylaxis
     Dosage: 100 MILLIGRAM
     Route: 048
     Dates: start: 20240214, end: 20240216
  35. PREDNISONE [Concomitant]
     Active Substance: PREDNISONE
     Dosage: 100 MILLIGRAM
     Route: 048
     Dates: start: 20240221, end: 20240223
  36. PREDNISONE [Concomitant]
     Active Substance: PREDNISONE
     Dosage: 100 MILLIGRAM
     Route: 048
     Dates: start: 20240308, end: 20240310
  37. METOCLOPRAMIDE [Concomitant]
     Active Substance: METOCLOPRAMIDE
     Indication: Product used for unknown indication
     Dosage: UNK
     Route: 065
     Dates: start: 20240210, end: 20240218
  38. FLUCONAZOLE [Concomitant]
     Active Substance: FLUCONAZOLE
     Indication: Product used for unknown indication
     Dosage: UNK
     Route: 065
     Dates: start: 20240301, end: 20240307
  39. LOPERAMIDE [Concomitant]
     Active Substance: LOPERAMIDE
     Indication: Product used for unknown indication
     Dosage: UNK
     Route: 065
     Dates: start: 20240211, end: 20240218
  40. ACETAMINOPHEN [Concomitant]
     Active Substance: ACETAMINOPHEN
     Indication: Premedication
     Dosage: UNK
     Route: 065
     Dates: start: 20240211, end: 20240221
  41. ACETAMINOPHEN [Concomitant]
     Active Substance: ACETAMINOPHEN
     Dosage: 100 MILLIGRAM
     Route: 048
     Dates: start: 20240305, end: 20240305
  42. ACYCLOVIR [Concomitant]
     Active Substance: ACYCLOVIR
     Indication: Product used for unknown indication
     Dosage: UNK
     Route: 065
     Dates: start: 20240301, end: 20240308
  43. TATIONIL [Concomitant]
     Indication: Product used for unknown indication
     Dosage: UNK
     Route: 065
     Dates: start: 20240209, end: 20240214
  44. CHLORPHENIRAMINE MALEATE [Concomitant]
     Active Substance: CHLORPHENIRAMINE MALEATE
     Indication: Premedication
     Dosage: 10 MILLIGRAM, DAILY
     Route: 042
     Dates: start: 20240305, end: 20240305
  45. URSODIOL [Concomitant]
     Active Substance: URSODIOL
     Indication: Product used for unknown indication
     Dosage: UNK
     Route: 065
     Dates: start: 20240209, end: 20240213
  46. SULFAMETHOXAZOLE AND TRIMETHOPRIM [Concomitant]
     Active Substance: SULFAMETHOXAZOLE\TRIMETHOPRIM
     Indication: Product used for unknown indication
     Dosage: UNK
     Route: 065
     Dates: start: 20231025

REACTIONS (4)
  - Myocardial infarction [Not Recovered/Not Resolved]
  - Chest discomfort [Unknown]
  - Dizziness [Unknown]
  - Cold sweat [Unknown]

NARRATIVE: CASE EVENT DATE: 20240308
